FAERS Safety Report 6543181-6 (Version None)
Quarter: 2010Q1

REPORT INFORMATION
  Report Type: 
  Country: None (occurrence: None)
  Receive Date: 20100120
  Receipt Date: 20100115
  Transmission Date: 20100710
  Serious: Yes (Other)
  Sender: FDA-Public Use
  Company Number: IE-ASTRAZENECA-2010SE02040

PATIENT
  Age: 61 Year
  Sex: Female

DRUGS (2)
  1. CRESTOR [Suspect]
     Indication: HYPERCHOLESTEROLAEMIA
     Route: 048
     Dates: start: 20091220, end: 20091226
  2. COVERSYL [Concomitant]
     Route: 065

REACTIONS (2)
  - ABDOMINAL DISCOMFORT [None]
  - BACK PAIN [None]
